FAERS Safety Report 7604245-9 (Version None)
Quarter: 2011Q3

REPORT INFORMATION
  Report Type: 
  Country: None (occurrence: None)
  Receive Date: 20110712
  Receipt Date: 20110707
  Transmission Date: 20111222
  Serious: Yes (Hospitalization)
  Sender: FDA-Public Use
  Company Number: CH-MERCK-1107USA01126

PATIENT
  Age: 74 Year
  Sex: Male

DRUGS (3)
  1. JANUVIA [Suspect]
     Indication: DIABETES MELLITUS
     Route: 048
     Dates: end: 20110327
  2. LANTUS [Suspect]
     Indication: DIABETES MELLITUS
     Route: 058
     Dates: end: 20110327
  3. AMARYL [Suspect]
     Route: 048
     Dates: end: 20110327

REACTIONS (3)
  - HYPOGLYCAEMIC COMA [None]
  - TREATMENT NONCOMPLIANCE [None]
  - MEDICATION ERROR [None]
